FAERS Safety Report 18381481 (Version 1)
Quarter: 2020Q4

REPORT INFORMATION
  Report Type: Spontaneous
  Country: US (occurrence: US)
  Receive Date: 20201013
  Receipt Date: 20201013
  Transmission Date: 20210114
  Serious: No
  Sender: FDA-Public Use
  Company Number: None

PATIENT
  Age: 69 Year
  Sex: Male
  Weight: 162 kg

DRUGS (1)
  1. ROSUVASTATIN (ROSUVASTATIN CA 20MG TAB) [Suspect]
     Active Substance: ROSUVASTATIN
     Indication: HYPERLIPIDAEMIA
     Route: 048
     Dates: start: 20200618, end: 20200730

REACTIONS (2)
  - Peripheral swelling [None]
  - Swelling [None]

NARRATIVE: CASE EVENT DATE: 20200730
